FAERS Safety Report 22888167 (Version 4)
Quarter: 2024Q2

REPORT INFORMATION
  Report Type: Report from Study
  Country: IT (occurrence: IT)
  Receive Date: 20230831
  Receipt Date: 20240607
  Transmission Date: 20240715
  Serious: Yes (Death, Hospitalization)
  Sender: FDA-Public Use
  Company Number: None

PATIENT
  Age: 71 Year
  Sex: Male

DRUGS (1)
  1. LENALIDOMIDE [Suspect]
     Active Substance: LENALIDOMIDE
     Indication: Plasma cell myeloma
     Dosage: 10 MILLIGRAM GG 1-21
     Route: 048

REACTIONS (2)
  - Epilepsy [Fatal]
  - Encephalitis [Fatal]

NARRATIVE: CASE EVENT DATE: 20230731
